FAERS Safety Report 12808760 (Version 3)
Quarter: 2019Q3

REPORT INFORMATION
  Report Type: Spontaneous
  Country: US (occurrence: US)
  Receive Date: 20161004
  Receipt Date: 20190813
  Transmission Date: 20191004
  Serious: Yes (Other)
  Sender: FDA-Public Use
  Company Number: US-PFIZER INC-2016459004

PATIENT
  Age: 65 Year
  Sex: Female
  Weight: 78.5 kg

DRUGS (4)
  1. LYRICA [Suspect]
     Active Substance: PREGABALIN
     Indication: SCIATICA
  2. LYRICA [Suspect]
     Active Substance: PREGABALIN
     Indication: RHEUMATOID ARTHRITIS
     Dosage: 300 MG, TWICE A DAY
     Route: 048
  3. LYRICA [Suspect]
     Active Substance: PREGABALIN
     Indication: FIBROMYALGIA
  4. CYMBALTA [Concomitant]
     Active Substance: DULOXETINE HYDROCHLORIDE
     Dosage: UNK

REACTIONS (10)
  - Arthropathy [Unknown]
  - Sciatic nerve neuropathy [Unknown]
  - Hand fracture [Unknown]
  - Foot fracture [Unknown]
  - Fall [Unknown]
  - Back pain [Unknown]
  - Gait inability [Unknown]
  - Joint dislocation [Unknown]
  - Bone density decreased [Unknown]
  - Depressed mood [Unknown]
